FAERS Safety Report 13740728 (Version 1)
Quarter: 2017Q3

REPORT INFORMATION
  Report Type: Spontaneous
  Country: US (occurrence: US)
  Receive Date: 20170711
  Receipt Date: 20170711
  Transmission Date: 20171127
  Serious: Yes (Other)
  Sender: FDA-Public Use
  Company Number: US-AUROBINDO-AUR-APU-2017-34415

PATIENT
  Sex: Male

DRUGS (1)
  1. FLUCONAZOLE 200MG [Suspect]
     Active Substance: FLUCONAZOLE
     Indication: PRODUCT USED FOR UNKNOWN INDICATION
     Dosage: 200 MG, UNK
     Route: 065

REACTIONS (8)
  - Tinnitus [Unknown]
  - Feeling of despair [Unknown]
  - Nervousness [Unknown]
  - Arrhythmia [Unknown]
  - Palpitations [Unknown]
  - Chest discomfort [Unknown]
  - Malaise [Unknown]
  - Anxiety [Unknown]
